FAERS Safety Report 15640281 (Version 2)
Quarter: 2019Q1

REPORT INFORMATION
  Report Type: Report from Study
  Country: US (occurrence: US)
  Receive Date: 20181120
  Receipt Date: 20190115
  Transmission Date: 20190417
  Serious: Yes (Hospitalization, Congenital Anomaly, Other)
  Sender: FDA-Public Use
  Company Number: US-GILEAD-2018-0374675

PATIENT
  Age: 0 Year
  Sex: Female

DRUGS (3)
  1. FOLATE [Suspect]
     Active Substance: FOLATE SODIUM
     Indication: PRODUCT USED FOR UNKNOWN INDICATION
     Dosage: UNK
     Route: 064
  2. COBICISTAT;DARUNAVIR [Suspect]
     Active Substance: COBICISTAT\DARUNAVIR ETHANOLATE
     Indication: HIV INFECTION
     Dosage: 1 DF, QD
     Route: 064
     Dates: start: 20180401, end: 20181008
  3. EMTRICITABINE/TENOFOVIR DISOPROXIL FUMARATE [Suspect]
     Active Substance: EMTRICITABINE\TENOFOVIR DISOPROXIL FUMARATE
     Indication: HIV INFECTION
     Dosage: 1 DF, QD
     Route: 064
     Dates: start: 20180401, end: 20181008

REACTIONS (5)
  - Atrial septal defect [Unknown]
  - Foetal exposure during pregnancy [Recovered/Resolved]
  - Talipes [Unknown]
  - Low birth weight baby [Unknown]
  - Patent ductus arteriosus [Unknown]

NARRATIVE: CASE EVENT DATE: 20180401
